FAERS Safety Report 6578010-8 (Version None)
Quarter: 2010Q1

REPORT INFORMATION
  Report Type: 
  Country: None (occurrence: None)
  Receive Date: 20100211
  Receipt Date: 20091117
  Transmission Date: 20100710
  Serious: No
  Sender: FDA-Public Use
  Company Number: US-BRISTOL-MYERS SQUIBB COMPANY-14861306

PATIENT
  Age: 55 Year
  Sex: Female

DRUGS (2)
  1. IXEMPRA KIT [Suspect]
     Indication: BREAST CANCER
     Dosage: DOSE REDUCED TO 50%
     Route: 042
  2. AVASTIN [Suspect]
     Indication: BREAST CANCER

REACTIONS (1)
  - SKIN EXFOLIATION [None]
